FAERS Safety Report 24282315 (Version 1)
Quarter: 2024Q3

REPORT INFORMATION
  Report Type: Spontaneous
  Country: CN (occurrence: CN)
  Receive Date: 20240904
  Receipt Date: 20240904
  Transmission Date: 20241016
  Serious: Yes (Other)
  Sender: PFIZER
  Company Number: CN-PFIZER INC-PV202400114131

PATIENT
  Age: 83 Year
  Sex: Male

DRUGS (4)
  1. LINEZOLID [Suspect]
     Active Substance: LINEZOLID
     Indication: Chronic kidney disease
     Dosage: 600 MG, 2X/DAY
     Route: 048
     Dates: start: 20240806, end: 20240820
  2. LINEZOLID [Suspect]
     Active Substance: LINEZOLID
     Indication: Skin infection
  3. ATORVASTATIN CALCIUM [Suspect]
     Active Substance: ATORVASTATIN CALCIUM
     Indication: Chronic kidney disease
     Dosage: 20 MG, 1X/DAY
     Route: 048
     Dates: start: 20240806, end: 20240820
  4. ATORVASTATIN CALCIUM [Suspect]
     Active Substance: ATORVASTATIN CALCIUM
     Indication: Arteriosclerosis

REACTIONS (3)
  - Transaminases increased [Recovering/Resolving]
  - Hepatic function abnormal [Recovering/Resolving]
  - Liver injury [Recovering/Resolving]

NARRATIVE: CASE EVENT DATE: 20240819
